FAERS Safety Report 8559208-6 (Version None)
Quarter: 2012Q3

REPORT INFORMATION
  Report Type: 
  Country: None (occurrence: None)
  Receive Date: 20120720
  Receipt Date: 20120709
  Transmission Date: 20120928
  Serious: Yes (Other)
  Sender: FDA-Public Use
  Company Number: 2012P1048822

PATIENT
  Age: 46 Year
  Sex: Female
  Weight: 60 kg

DRUGS (1)
  1. PHENYTOIN [Suspect]
     Indication: CONVULSION
     Dosage: 300;150 MG, QD, PO,
     Route: 048

REACTIONS (5)
  - COUGH [None]
  - BRONCHOSPASM [None]
  - INCORRECT DRUG ADMINISTRATION RATE [None]
  - RESPIRATORY DISTRESS [None]
  - RHONCHI [None]
